FAERS Safety Report 6266097-1 (Version None)
Quarter: 2009Q3

REPORT INFORMATION
  Report Type: 
  Country: None (occurrence: None)
  Receive Date: 20090709
  Receipt Date: 20090709
  Transmission Date: 20100115
  Serious: No
  Sender: FDA-Public Use
  Company Number: None

PATIENT
  Age: 63 Year
  Sex: Female
  Weight: 65.318 kg

DRUGS (1)
  1. ZICAM COLD REMEDY NASAL GEL ZICAM [Suspect]
     Indication: HYPERSENSITIVITY
     Dosage: SINGLE APPLICATION 3 TIMES A DAY
     Dates: start: 20080901, end: 20081211

REACTIONS (2)
  - AGEUSIA [None]
  - ANOSMIA [None]
